FAERS Safety Report 13564232 (Version 2)
Quarter: 2017Q2

REPORT INFORMATION
  Report Type: Spontaneous
  Country: CN (occurrence: CN)
  Receive Date: 20170519
  Receipt Date: 20170531
  Transmission Date: 20170830
  Serious: Yes (Other)
  Sender: FDA-Public Use
  Company Number: CN-ABBVIE-17P-035-1981207-00

PATIENT
  Age: 26 Year
  Sex: Female

DRUGS (2)
  1. DEPAKINE CHRONO [Suspect]
     Active Substance: VALPROATE SODIUM
     Indication: BIPOLAR DISORDER
     Dosage: EXTENDED RELEASE TABLET
     Route: 048
  2. DEPAKINE CHRONO [Suspect]
     Active Substance: VALPROATE SODIUM
     Dosage: EXTENDED RELEASE TABLET
     Route: 048
     Dates: start: 20170511, end: 20170511

REACTIONS (3)
  - Overdose [Unknown]
  - Bipolar disorder [Unknown]
  - Intentional product misuse [Unknown]
